FAERS Safety Report 17121672 (Version 5)
Quarter: 2020Q1

REPORT INFORMATION
  Report Type: Report from Study
  Country: AU (occurrence: AU)
  Receive Date: 20191206
  Receipt Date: 20200120
  Transmission Date: 20200409
  Serious: No
  Sender: FDA-Public Use
  Company Number: AU-BEH-2019110231

PATIENT
  Age: 50 Year
  Sex: Male
  Weight: 53 kg

DRUGS (9)
  1. CIPROFLOXACIN. [Suspect]
     Active Substance: CIPROFLOXACIN
     Dosage: UNK
     Route: 048
     Dates: start: 20191203
  2. HIZENTRA [Suspect]
     Active Substance: HUMAN IMMUNOGLOBULIN G
     Indication: SECONDARY IMMUNODEFICIENCY
     Dosage: 8 GRAM Q 10 DAYS (24 GRAM/MONTH)
     Route: 058
     Dates: start: 20191203
  3. PERINDOPRIL [Concomitant]
     Active Substance: PERINDOPRIL
  4. HIZENTRA [Suspect]
     Active Substance: HUMAN IMMUNOGLOBULIN G
     Dosage: 8 GRAMS EVERY 10 DAYS
     Route: 058
     Dates: start: 201912
  5. ATORVASTATIN [Concomitant]
     Active Substance: ATORVASTATIN
  6. HIZENTRA [Suspect]
     Active Substance: HUMAN IMMUNOGLOBULIN G
     Dosage: 8 GRAM, TOT
     Route: 058
     Dates: start: 20191209, end: 20191209
  7. AMIODARONE [Concomitant]
     Active Substance: AMIODARONE
  8. CANDESARTAN. [Concomitant]
     Active Substance: CANDESARTAN
  9. TOBRAMYCIN. [Concomitant]
     Active Substance: TOBRAMYCIN

REACTIONS (8)
  - Infusion site erythema [Recovered/Resolved]
  - Infusion site swelling [Unknown]
  - Rash [Unknown]
  - Tinnitus [Unknown]
  - Injection site erythema [Unknown]
  - Infusion site swelling [Recovered/Resolved]
  - Nausea [Recovering/Resolving]
  - Euphoric mood [Unknown]

NARRATIVE: CASE EVENT DATE: 201912
